FAERS Safety Report 5106707-5 (Version None)
Quarter: 2006Q3

REPORT INFORMATION
  Report Type: 
  Country: None (occurrence: None)
  Receive Date: 20060918
  Receipt Date: 20040702
  Transmission Date: 20061208
  Serious: Yes (Other)
  Sender: FDA-Public Use
  Company Number: CH-MERCK-0407CHE00002

PATIENT
  Age: 39 Year
  Sex: Female

DRUGS (13)
  1. INDOCIN [Suspect]
     Indication: ARTHRALGIA
     Route: 048
     Dates: start: 20040301, end: 20040406
  2. CELECOXIB [Suspect]
     Indication: ARTHRALGIA
     Route: 048
     Dates: start: 20040409, end: 20040413
  3. SUFENTANIL CITRATE [Suspect]
     Indication: ANAESTHESIA
     Route: 042
     Dates: start: 20040406, end: 20040406
  4. LORAZEPAM [Suspect]
     Indication: ANXIETY
     Route: 048
     Dates: start: 20040409, end: 20040411
  5. MORPHINE [Concomitant]
     Indication: ARTHRALGIA
     Route: 048
     Dates: start: 20040408, end: 20040410
  6. TRAMADOL HYDROCHLORIDE [Concomitant]
     Indication: ARTHRALGIA
     Route: 048
     Dates: start: 20040406, end: 20040407
  7. KETOROLAC [Concomitant]
     Indication: ARTHRALGIA
     Route: 048
     Dates: start: 20040406, end: 20040407
  8. CEFTRIAXONE SODIUM [Concomitant]
     Indication: INFECTION PROPHYLAXIS
     Route: 042
     Dates: start: 20040406, end: 20040406
  9. METRONIDAZOLE [Concomitant]
     Indication: INFECTION PROPHYLAXIS
     Route: 048
     Dates: start: 20040406, end: 20040406
  10. OMEPRAZOLE [Concomitant]
     Indication: DYSPEPSIA
     Route: 048
     Dates: start: 20040406, end: 20040501
  11. ACETAMINOPHEN [Concomitant]
     Indication: ARTHRALGIA
     Route: 042
     Dates: start: 20040409, end: 20040413
  12. PROPOFOL [Concomitant]
     Indication: ANAESTHESIA
     Route: 042
     Dates: start: 20040406, end: 20040406
  13. SUCCINYLCHOLINE CHLORIDE [Concomitant]
     Indication: ANAESTHESIA
     Route: 042
     Dates: start: 20040406, end: 20040406

REACTIONS (5)
  - ABORTION INDUCED [None]
  - DRUG EXPOSURE DURING PREGNANCY [None]
  - DYSPHAGIA [None]
  - GENERAL PHYSICAL HEALTH DETERIORATION [None]
  - PREGNANCY [None]
